FAERS Safety Report 6592432-0 (Version None)
Quarter: 2010Q1

REPORT INFORMATION
  Report Type: 
  Country: None (occurrence: None)
  Receive Date: 20100221
  Receipt Date: 20091009
  Transmission Date: 20100710
  Serious: No
  Sender: FDA-Public Use
  Company Number: US-ALLERGAN-0914049US

PATIENT
  Age: 25 Year

DRUGS (2)
  1. BOTOX COSMETIC [Suspect]
     Indication: SKIN WRINKLING
     Dosage: 22 UNITS, UNK
     Route: 030
     Dates: start: 20090930, end: 20090930
  2. BOTOX COSMETIC [Suspect]
     Dosage: 20 UNITS, SINGLE
     Dates: start: 20091008, end: 20091008

REACTIONS (1)
  - THERAPEUTIC RESPONSE DECREASED [None]
